FAERS Safety Report 18166706 (Version 1)
Quarter: 2020Q3

REPORT INFORMATION
  Report Type: Spontaneous
  Country: DE (occurrence: DE)
  Receive Date: 20200819
  Receipt Date: 20200819
  Transmission Date: 20201103
  Serious: Yes (Other)
  Sender: FDA-Public Use
  Company Number: DE-TEVA-2020-DE-1815356

PATIENT
  Age: 8 Week
  Sex: Male

DRUGS (5)
  1. ROTAVIRUS VACCINE [Suspect]
     Active Substance: HUMAN ROTAVIRUS A
     Route: 048
  2. IBUPROFEN. [Suspect]
     Active Substance: IBUPROFEN
     Dosage: 3?4 DAYS, 400 MG
     Route: 064
  3. MACROGOL [Suspect]
     Active Substance: POLYETHYLENE GLYCOLS
     Dosage: TAKEN BY THE MOTHER POSTPARTUM
     Route: 063
  4. OBSTINOL [Suspect]
     Active Substance: CALCIUM PANTOTHENATE\DANTHRON
     Dosage: TAKEN BY THE MOTHER POSTPARTUM
     Route: 063
  5. BOXHORNKLEE [Suspect]
     Active Substance: FENUGREEK LEAF\HERBALS
     Dosage: 3 DOSAGE FORMS DAILY; 3 TIMES A DAY APPROX. 2?3 WEEKS BEFORE BIRTH, 1 DF
     Route: 064

REACTIONS (5)
  - Cholestasis [Unknown]
  - Liver injury [Unknown]
  - Transaminases increased [Recovered/Resolved]
  - Foetal exposure during pregnancy [Unknown]
  - Hypovitaminosis [Unknown]

NARRATIVE: CASE EVENT DATE: 2020
